FAERS Safety Report 21872303 (Version 7)
Quarter: 2024Q2

REPORT INFORMATION
  Report Type: Spontaneous
  Country: US (occurrence: US)
  Receive Date: 20230117
  Receipt Date: 20240423
  Transmission Date: 20240716
  Serious: Yes (Disabling, Other)
  Sender: FDA-Public Use
  Company Number: US-PFIZER INC-202300015791

PATIENT
  Age: 83 Year
  Sex: Male
  Weight: 77.098 kg

DRUGS (27)
  1. VYNDAMAX [Suspect]
     Active Substance: TAFAMIDIS
     Indication: Cardiac fibrillation
     Dosage: 61 MG, 1X/DAY
     Route: 048
     Dates: start: 20221111
  2. VYNDAMAX [Suspect]
     Active Substance: TAFAMIDIS
     Indication: Cardiac amyloidosis
  3. VYNDAMAX [Suspect]
     Active Substance: TAFAMIDIS
     Indication: Atrial fibrillation
  4. VYNDAMAX [Suspect]
     Active Substance: TAFAMIDIS
     Indication: Oedema
  5. VYNDAMAX [Suspect]
     Active Substance: TAFAMIDIS
     Indication: Atrial fibrillation
  6. VYNDAMAX [Suspect]
     Active Substance: TAFAMIDIS
     Indication: Heart failure with preserved ejection fraction
  7. VYNDAMAX [Suspect]
     Active Substance: TAFAMIDIS
     Indication: Dyspnoea
  8. VYNDAMAX [Suspect]
     Active Substance: TAFAMIDIS
     Indication: Cardiomyopathy
  9. VYNDAMAX [Suspect]
     Active Substance: TAFAMIDIS
     Indication: Acquired ATTR amyloidosis
  10. VYNDAMAX [Suspect]
     Active Substance: TAFAMIDIS
     Indication: Amyloidosis
  11. VYNDAMAX [Suspect]
     Active Substance: TAFAMIDIS
     Indication: Cardiac amyloidosis
  12. VYNDAMAX [Suspect]
     Active Substance: TAFAMIDIS
     Indication: Cardiac failure congestive
  13. APIXABAN [Concomitant]
     Active Substance: APIXABAN
     Dosage: 2.5 MG, 2X/DAY
     Route: 048
     Dates: end: 20230117
  14. METOPROLOL SUCCINATE [Concomitant]
     Active Substance: METOPROLOL SUCCINATE
     Dosage: 100 MG, 1X/DAY (TAKE 1 TABLET BY MOUTH DAILY)
     Route: 048
     Dates: start: 20221010
  15. FAMOTIDINE [Concomitant]
     Active Substance: FAMOTIDINE
     Dosage: 20 MG, 2X/DAY
     Route: 048
     Dates: start: 20220802
  16. GABAPENTIN [Concomitant]
     Active Substance: GABAPENTIN
     Dosage: 300 MG, 1X/DAY (TAKE 1 CAPSULE BY MOUTH DAILY AS NEEDED)
     Route: 048
     Dates: start: 20220407
  17. FUROSEMIDE [Concomitant]
     Active Substance: FUROSEMIDE
     Dosage: 20 MG, 3X/DAY (TAKE 3 TABLETS BY MOUTH DAILY)
     Route: 048
     Dates: start: 20220401
  18. FUROSEMIDE [Concomitant]
     Active Substance: FUROSEMIDE
     Dosage: 60 MG, DAILY
     Route: 048
     Dates: start: 20220401
  19. NITROGLYCERIN [Concomitant]
     Active Substance: NITROGLYCERIN
     Indication: Chest pain
     Dosage: (PLACE 1 TABLET UNDER THE TONGUE EVERY 5 MINUTES AS NEEDED)
     Route: 060
     Dates: start: 20210204
  20. ACETAMINOPHEN [Concomitant]
     Active Substance: ACETAMINOPHEN
     Indication: Pain
     Dosage: 650 MG, EVERY 4 HRS (AS NEEDED)
     Route: 048
  21. ALBUTEROL SULFATE [Concomitant]
     Active Substance: ALBUTEROL SULFATE
     Indication: Wheezing
     Dosage: 0.42 MG/ML, (1.25 MG/3ML,TAKE1AMPULE BY NEBULIZATION EVERY 6 HOURS AS NEEDED)
  22. ALBUTEROL SULFATE [Concomitant]
     Active Substance: ALBUTEROL SULFATE
     Indication: Wheezing
     Dosage: (INHALE 2 PUFFS INTO LUNGS EVERY 4 HOURS)
     Dates: start: 20180226
  23. LIDOCAINE [Concomitant]
     Active Substance: LIDOCAINE
     Dosage: (ADHESIVE PATCH, MEDICATED) (PLACE 1 PATCH ONTO AFFECTED AREA FOR 12 HOURS THEN REMOVE FOR 12 HOURS)
     Dates: start: 20221231, end: 20230103
  24. METHYL SALICYLATE [Concomitant]
     Active Substance: METHYL SALICYLATE
     Dosage: 2X/DAY (15-10%) (APPLY 1 EACH EACH TOPICALLY 2 TIMES DAILY)
     Route: 061
     Dates: start: 20221231, end: 20230103
  25. RIVAROXABAN [Concomitant]
     Active Substance: RIVAROXABAN
     Dosage: 15 MG, 1X/DAY
     Route: 048
     Dates: start: 20221222, end: 20230103
  26. ATORVASTATIN [Concomitant]
     Active Substance: ATORVASTATIN
     Dosage: 10 MG, 1X/DAY
     Route: 048
     Dates: start: 20220829, end: 20230113
  27. TORSEMIDE [Concomitant]
     Active Substance: TORSEMIDE
     Dosage: UNK

REACTIONS (9)
  - Tricuspid valve incompetence [Unknown]
  - Localised infection [Not Recovered/Not Resolved]
  - Gout [Not Recovered/Not Resolved]
  - Musculoskeletal disorder [Not Recovered/Not Resolved]
  - Drug ineffective [Unknown]
  - Left ventricular dysfunction [Unknown]
  - Weight decreased [Unknown]
  - Erythema [Not Recovered/Not Resolved]
  - Pain in extremity [Not Recovered/Not Resolved]

NARRATIVE: CASE EVENT DATE: 20221230
